FAERS Safety Report 8826316 (Version 1)
Quarter: 2012Q4

REPORT INFORMATION
  Report Type: 
  Country: DE (occurrence: DE)
  Receive Date: 20121005
  Receipt Date: 20121005
  Transmission Date: 20130627
  Serious: Yes (Hospitalization)
  Sender: FDA-Public Use
  Company Number: DE-ROCHE-1141903

PATIENT
  Sex: Female

DRUGS (2)
  1. AVASTIN [Suspect]
     Indication: BREAST CANCER
     Route: 065
  2. DOCETAXEL [Concomitant]
     Indication: BREAST CANCER

REACTIONS (2)
  - Epistaxis [Recovered/Resolved]
  - Skeletal injury [Recovered/Resolved]
